FAERS Safety Report 11114419 (Version 26)
Quarter: 2018Q2

REPORT INFORMATION
  Report Type: Report from Study
  Country: BR (occurrence: BR)
  Receive Date: 20150515
  Receipt Date: 20180620
  Transmission Date: 20180711
  Serious: Yes (Hospitalization, Other)
  Sender: FDA-Public Use
  Company Number: PHHY2015BR057135

PATIENT
  Sex: Female
  Weight: 32 kg

DRUGS (15)
  1. EXJADE [Suspect]
     Active Substance: DEFERASIROX
     Dosage: 625 MG IN ONE DAY AND 500 MG ON THE OTHER DAY, QD
     Route: 048
  2. EXJADE [Suspect]
     Active Substance: DEFERASIROX
     Dosage: 750 MG ON ONE DAY AND 1000 MG ON ANOTHER DAY, QD
     Route: 048
  3. AMLODIPINE [Suspect]
     Active Substance: AMLODIPINE BESYLATE
     Indication: PRODUCT USED FOR UNKNOWN INDICATION
     Dosage: UNK UNK, QD (AT FASTING CONDITION)
     Route: 065
  4. PHENOBARBITAL. [Concomitant]
     Active Substance: PHENOBARBITAL
     Indication: CARDIOVASCULAR EVENT PROPHYLAXIS
  5. EXJADE [Suspect]
     Active Substance: DEFERASIROX
     Indication: SPHEROCYTIC ANAEMIA
     Dosage: 10 MG/KG, QD (1 TABLET OF 250 MG)
     Route: 048
  6. EXJADE [Suspect]
     Active Substance: DEFERASIROX
     Dosage: 20 MG/KG, QD (1 DF OF 500 MG)
     Route: 048
  7. EXJADE [Suspect]
     Active Substance: DEFERASIROX
     Dosage: 1000 MG, QD (2 TABLETS OF 500 MG PER DAY )
     Route: 048
  8. EXJADE [Suspect]
     Active Substance: DEFERASIROX
     Dosage: 1000 MG, QD
     Route: 048
  9. CAPTOPRIL. [Suspect]
     Active Substance: CAPTOPRIL
     Indication: PRODUCT USED FOR UNKNOWN INDICATION
     Dosage: UNK UNK, QD (AT FASTING CONDITION)
     Route: 065
  10. PHENOBARBITAL. [Concomitant]
     Active Substance: PHENOBARBITAL
     Indication: CONVULSION PROPHYLAXIS
     Dosage: 40 ML, BID
     Route: 048
  11. DEPAKENE [Concomitant]
     Active Substance: VALPROIC ACID
     Indication: CONVULSION PROPHYLAXIS
     Dosage: 6 ML, TID  (AT FASTING CONDITION)
     Route: 048
  12. FOLIC ACID. [Concomitant]
     Active Substance: FOLIC ACID
     Indication: ANAEMIA
     Dosage: 1 DF, QD
     Route: 048
  13. EXJADE [Suspect]
     Active Substance: DEFERASIROX
     Dosage: 25 MG/KG, QD (750 MG IN ONE DAY)
     Route: 048
  14. DEPAKENE [Concomitant]
     Active Substance: VALPROIC ACID
     Indication: CARDIOVASCULAR EVENT PROPHYLAXIS
  15. EXJADE [Suspect]
     Active Substance: DEFERASIROX
     Indication: HAEMOLYTIC ANAEMIA
     Dosage: 35 MG/KG, QD (3 DF OF 250 MG)
     Route: 048
     Dates: start: 2014

REACTIONS (29)
  - Chromaturia [Recovering/Resolving]
  - Asthenia [Recovered/Resolved]
  - Serum ferritin increased [Unknown]
  - Inappropriate schedule of drug administration [Unknown]
  - Malaise [Recovered/Resolved]
  - Skin fragility [Unknown]
  - Urinary tract infection [Recovering/Resolving]
  - Pallor [Unknown]
  - Haemoglobin decreased [Unknown]
  - Hypersensitivity [Unknown]
  - Vomiting [Unknown]
  - Dysuria [Unknown]
  - Ocular icterus [Unknown]
  - Vomiting [Recovered/Resolved]
  - Pneumonia [Unknown]
  - Infection [Unknown]
  - Iron overload [Unknown]
  - Cholelithiasis [Recovering/Resolving]
  - Pneumonia [Recovered/Resolved]
  - Cough [Unknown]
  - Dysuria [Recovered/Resolved]
  - Nausea [Recovered/Resolved]
  - Pyrexia [Unknown]
  - Heart rate increased [Unknown]
  - Salivary hypersecretion [Recovered/Resolved]
  - Influenza [Unknown]
  - Speech disorder [Unknown]
  - Diarrhoea [Recovered/Resolved]
  - Diarrhoea [Unknown]

NARRATIVE: CASE EVENT DATE: 2015
